FAERS Safety Report 8271274-4 (Version None)
Quarter: 2012Q2

REPORT INFORMATION
  Report Type: 
  Country: None (occurrence: None)
  Receive Date: 20120410
  Receipt Date: 20120405
  Transmission Date: 20120825
  Serious: Yes (Other)
  Sender: FDA-Public Use
  Company Number: US-PFIZER INC-2012042330

PATIENT
  Sex: Female
  Weight: 109 kg

DRUGS (9)
  1. RISPERIDONE [Suspect]
     Indication: DEPRESSION
  2. LISINOPRIL AND HYDROCHLOROTHIAZIDE [Concomitant]
     Indication: HYPERTENSION
     Dosage: UNK
  3. RISPERIDONE [Suspect]
     Indication: IRRITABILITY
  4. TRAZODONE [Concomitant]
     Dosage: 200 MG, DAILY
     Route: 048
  5. ATIVAN [Concomitant]
     Dosage: 0.5 MG, 3X/DAY
  6. NEURONTIN [Suspect]
     Indication: DIABETIC NEUROPATHY
     Dosage: 400 MG, 3X/DAY
     Dates: start: 20100101
  7. RISPERIDONE [Suspect]
     Indication: AGITATION
     Dosage: UNK, DAILY
     Route: 048
     Dates: start: 20120201
  8. METFORMIN [Concomitant]
     Indication: DIABETES MELLITUS
     Dosage: 500 MG, 2X/DAY
  9. CELEXA [Concomitant]
     Indication: DEPRESSION
     Dosage: 40 MG, DAILY

REACTIONS (7)
  - BACK PAIN [None]
  - FEELING ABNORMAL [None]
  - HYPERTENSION [None]
  - FEAR [None]
  - AGITATION [None]
  - IRRITABILITY [None]
  - DEPRESSION [None]
